FAERS Safety Report 8938785 (Version 1)
Quarter: 2012Q4

REPORT INFORMATION
  Report Type: Report from Study
  Country: CA (occurrence: CA)
  Receive Date: 20121203
  Receipt Date: 20121203
  Transmission Date: 20130627
  Serious: Yes (Hospitalization)
  Sender: FDA-Public Use
  Company Number: CA-JNJFOC-20121112035

PATIENT
  Age: 65 None
  Sex: Female
  Weight: 102.2 kg

DRUGS (11)
  1. REMICADE [Suspect]
     Indication: CROHN^S DISEASE
     Route: 042
     Dates: start: 201103
  2. ATACAND [Concomitant]
     Route: 065
  3. METFORMIN [Concomitant]
     Route: 065
  4. OMEPRAZOLE [Concomitant]
     Route: 065
  5. PREDNISONE [Concomitant]
     Route: 065
  6. CYMBALTA [Concomitant]
     Route: 065
  7. PENTASA [Concomitant]
     Route: 065
  8. IMURAN [Concomitant]
     Route: 065
  9. GLICLAZIDE [Concomitant]
     Route: 065
  10. INSULIN [Concomitant]
     Route: 065
  11. ASA [Concomitant]
     Route: 065

REACTIONS (3)
  - Ischaemic stroke [Recovered/Resolved]
  - Temporal arteritis [Unknown]
  - Memory impairment [Not Recovered/Not Resolved]
